FAERS Safety Report 8386663-7 (Version None)
Quarter: 2012Q2

REPORT INFORMATION
  Report Type: 
  Country: None (occurrence: None)
  Receive Date: 20120525
  Receipt Date: 20120521
  Transmission Date: 20120825
  Serious: Yes (Other)
  Sender: FDA-Public Use
  Company Number: IE-PFIZER INC-2012052472

PATIENT
  Age: 25 Year
  Sex: Female

DRUGS (2)
  1. ACETAMINOPHEN AND CODEINE PHOSPHATE [Concomitant]
     Indication: SCIATICA
     Dosage: 2 CAPLETS
     Route: 048
     Dates: start: 20110303, end: 20110401
  2. LYRICA [Suspect]
     Indication: SCIATICA
     Dosage: 300 MG, 1X/DAY AT NIGHT
     Route: 048
     Dates: start: 20110316

REACTIONS (4)
  - DRUG DEPENDENCE [None]
  - WITHDRAWAL SYNDROME [None]
  - ANXIETY [None]
  - INSOMNIA [None]
